FAERS Safety Report 16877837 (Version 2)
Quarter: 2019Q4

REPORT INFORMATION
  Report Type: Report from Study
  Country: US (occurrence: US)
  Receive Date: 20191002
  Receipt Date: 20191017
  Transmission Date: 20200122
  Serious: Yes (Other)
  Sender: FDA-Public Use
  Company Number: US-ROCHE-2414845

PATIENT
  Sex: Female
  Weight: 54.48 kg

DRUGS (6)
  1. RITUXAN [Suspect]
     Active Substance: RITUXIMAB
     Indication: RELAPSING-REMITTING MULTIPLE SCLEROSIS
     Dosage: EVERY 2 MONTHS ;ONGOING: NO
     Route: 065
     Dates: start: 200803, end: 200811
  2. AUBAGIO [Concomitant]
     Active Substance: TERIFLUNOMIDE
     Route: 065
     Dates: start: 2017
  3. TECFIDERA [Concomitant]
     Active Substance: DIMETHYL FUMARATE
     Route: 065
     Dates: start: 200808
  4. RITUXAN [Suspect]
     Active Substance: RITUXIMAB
     Indication: NON-HODGKIN^S LYMPHOMA
     Dosage: 4 WEEKS ;ONGOING: NO
     Route: 065
     Dates: start: 200511, end: 200512
  5. RITUXAN [Suspect]
     Active Substance: RITUXIMAB
     Route: 065
     Dates: start: 200909, end: 201902
  6. BETASERON [Concomitant]
     Active Substance: INTERFERON BETA-1B

REACTIONS (8)
  - Nephropathy [Unknown]
  - Intentional product use issue [Unknown]
  - Hypersensitivity [Recovered/Resolved]
  - Cough [Unknown]
  - Off label use [Unknown]
  - Progressive multifocal leukoencephalopathy [Unknown]
  - Pregnancy [Unknown]
  - Multiple sclerosis [Unknown]
